FAERS Safety Report 7534463-X (Version None)
Quarter: 2011Q2

REPORT INFORMATION
  Report Type: 
  Country: None (occurrence: None)
  Receive Date: 20110608
  Receipt Date: 20110525
  Transmission Date: 20111010
  Serious: Yes (Other)
  Sender: FDA-Public Use
  Company Number: DK-GENENTECH-319807

PATIENT
  Age: 51 Year
  Sex: Female

DRUGS (5)
  1. XOLAIR [Suspect]
     Indication: ASTHMA
     Dosage: 375 MG, Q2W
     Dates: start: 20070306
  2. SINGULAIR [Concomitant]
     Indication: PRODUCT USED FOR UNKNOWN INDICATION
  3. SERETIDE [Concomitant]
     Indication: PRODUCT USED FOR UNKNOWN INDICATION
  4. BRICANYL [Concomitant]
     Indication: PRODUCT USED FOR UNKNOWN INDICATION
  5. XOLAIR [Suspect]
     Dosage: 300 MG, Q4W

REACTIONS (1)
  - TOOTH FRACTURE [None]
